FAERS Safety Report 4785790-0 (Version None)
Quarter: 2005Q4

REPORT INFORMATION
  Report Type: 
  Country: None (occurrence: None)
  Receive Date: 20051003
  Receipt Date: 20050927
  Transmission Date: 20060501
  Serious: Yes (Death, Hospitalization)
  Sender: FDA-Public Use
  Company Number: US-MERCK-0509USA04397

PATIENT
  Sex: Female

DRUGS (3)
  1. CANCIDAS [Suspect]
     Indication: SYSTEMIC CANDIDA
     Route: 041
  2. CANCIDAS [Suspect]
     Route: 041
     Dates: end: 20050101
  3. [THERAPY UNSPECIFIED] [Concomitant]
     Route: 065

REACTIONS (2)
  - MULTI-ORGAN FAILURE [None]
  - NEUTROPHIL COUNT DECREASED [None]
